FAERS Safety Report 6570697-9 (Version None)
Quarter: 2010Q1

REPORT INFORMATION
  Report Type: 
  Country: None (occurrence: None)
  Receive Date: 20100204
  Receipt Date: 20100129
  Transmission Date: 20100710
  Serious: Yes (Other)
  Sender: FDA-Public Use
  Company Number: A0842686A

PATIENT
  Age: 60 Year
  Sex: Female

DRUGS (4)
  1. WELLBUTRIN [Suspect]
     Indication: DEPRESSION
     Route: 048
  2. LYRICA [Suspect]
     Indication: DRUG USE FOR UNKNOWN INDICATION
     Dosage: 15TAB SINGLE DOSE
     Route: 048
  3. AVONEX [Suspect]
     Indication: MULTIPLE SCLEROSIS
     Dosage: 30MCG WEEKLY
     Route: 030
     Dates: start: 20070101
  4. EFFEXOR [Suspect]
     Indication: DEPRESSION
     Route: 065

REACTIONS (12)
  - APATHY [None]
  - APHASIA [None]
  - ASTHENIA [None]
  - CYSTITIS [None]
  - DEHYDRATION [None]
  - H1N1 INFLUENZA [None]
  - INTENTIONAL OVERDOSE [None]
  - MEMORY IMPAIRMENT [None]
  - PANIC ATTACK [None]
  - PNEUMONIA [None]
  - PYREXIA [None]
  - SUICIDE ATTEMPT [None]
